FAERS Safety Report 8610414-1 (Version None)
Quarter: 2012Q3

REPORT INFORMATION
  Report Type: 
  Country: None (occurrence: None)
  Receive Date: 20120801
  Receipt Date: 20120719
  Transmission Date: 20120928
  Serious: Yes (Hospitalization)
  Sender: FDA-Public Use
  Company Number: 2012PROUSA01695

PATIENT
  Age: 84 Year
  Sex: Male
  Weight: 76.2 kg

DRUGS (15)
  1. PROVENGE [Suspect]
  2. ACETAMINOPHEN [Concomitant]
  3. ASCORBIC ACID [Concomitant]
  4. PROVENGE [Suspect]
  5. COMPAZINE SPANSULE (PROCHLORPERAZINE) [Concomitant]
  6. CLINDAMYCIN (CLINDAMYCIN PHOSPHATE) [Concomitant]
  7. LUPRON [Concomitant]
  8. GLUCOSAMINE/CHONDROITIN (CHRONDROITIN SULFATE, GLUCOSAMINE) [Concomitant]
  9. ENALAPRIL MALEATE [Concomitant]
  10. METAMUCIL-2 [Concomitant]
  11. PROVENGE [Suspect]
     Indication: PROSTATE CANCER METASTATIC
     Dosage: 250 ML, SINGLE, INTRAVENOUS, 250 ML, SINGLE, INTRAVENOUS, 250 ML, SINGLE, INTRAVENOUS
     Route: 042
     Dates: start: 20120419, end: 20120419
  12. PROVENGE [Suspect]
     Indication: PROSTATE CANCER METASTATIC
     Dosage: 250 ML, SINGLE, INTRAVENOUS, 250 ML, SINGLE, INTRAVENOUS, 250 ML, SINGLE, INTRAVENOUS
     Route: 042
     Dates: start: 20120517, end: 20120517
  13. PROVENGE [Suspect]
     Indication: PROSTATE CANCER METASTATIC
     Dosage: 250 ML, SINGLE, INTRAVENOUS, 250 ML, SINGLE, INTRAVENOUS, 250 ML, SINGLE, INTRAVENOUS
     Route: 042
     Dates: start: 20120503, end: 20120503
  14. MULTIVITAMIN [Concomitant]
  15. ASPIRIN [Concomitant]

REACTIONS (5)
  - SOMNOLENCE [None]
  - EYELID PTOSIS [None]
  - SUBDURAL HAEMATOMA [None]
  - BALANCE DISORDER [None]
  - GAIT DISTURBANCE [None]
